FAERS Safety Report 8063007-1 (Version None)
Quarter: 2012Q1

REPORT INFORMATION
  Report Type: 
  Country: None (occurrence: None)
  Receive Date: 20120123
  Receipt Date: 20120116
  Transmission Date: 20120608
  Serious: Yes (Hospitalization)
  Sender: FDA-Public Use
  Company Number: BR-PFIZER INC-2012011892

PATIENT
  Age: 80 Year
  Sex: Female

DRUGS (5)
  1. CLONIDINE HYDROCHLORIDE [Concomitant]
  2. LOSACOR [Concomitant]
  3. METOPROLOL SUCCINATE [Concomitant]
  4. ALDOMET [Concomitant]
  5. LIPITOR [Suspect]
     Indication: BLOOD CHOLESTEROL
     Dosage: 20 MG, 1X/DAY
     Route: 048
     Dates: start: 20001024

REACTIONS (4)
  - PAIN IN EXTREMITY [None]
  - HYPERTENSION [None]
  - FIBROMYALGIA [None]
  - BACK PAIN [None]
